FAERS Safety Report 7555086-2 (Version None)
Quarter: 2011Q2

REPORT INFORMATION
  Report Type: 
  Country: None (occurrence: None)
  Receive Date: 20110617
  Receipt Date: 20110616
  Transmission Date: 20111010
  Serious: Yes (Other)
  Sender: FDA-Public Use
  Company Number: US-PFIZER INC-2011132790

PATIENT
  Sex: Female
  Weight: 70.295 kg

DRUGS (1)
  1. CHANTIX [Suspect]
     Indication: SMOKING CESSATION THERAPY
     Dosage: 0.5 MG, 1X/DAY
     Route: 048
     Dates: start: 20110613, end: 20110616

REACTIONS (5)
  - DEPRESSION [None]
  - CONSTIPATION [None]
  - URINARY RETENTION [None]
  - IRRITABILITY [None]
  - WEIGHT INCREASED [None]
